FAERS Safety Report 4851664-X (Version None)
Quarter: 2005Q4

REPORT INFORMATION
  Report Type: 
  Country: None (occurrence: None)
  Receive Date: 20051212
  Receipt Date: 20051104
  Transmission Date: 20060501
  Serious: Yes (Other)
  Sender: FDA-Public Use
  Company Number: PHEH2005US12213

PATIENT
  Age: 54 Year
  Sex: Male

DRUGS (1)
  1. HYDROCHLOROTHIAZIDE,METOPROLOL TARTRATE [Suspect]
     Indication: HYPERTENSION
     Dosage: 100 MG METO/25 MG HCTZ QD
     Route: 048
     Dates: start: 19950101, end: 20051031

REACTIONS (7)
  - ARTERIAL OCCLUSIVE DISEASE [None]
  - BLOOD PRESSURE INADEQUATELY CONTROLLED [None]
  - CATHETERISATION CARDIAC ABNORMAL [None]
  - DYSPNOEA [None]
  - FATIGUE [None]
  - HYPERTENSION [None]
  - JOINT SWELLING [None]
